FAERS Safety Report 6720290-X (Version None)
Quarter: 2010Q2

REPORT INFORMATION
  Report Type: 
  Country: None (occurrence: None)
  Receive Date: 20100511
  Receipt Date: 20100503
  Transmission Date: 20101027
  Serious: Yes (Other)
  Sender: FDA-Public Use
  Company Number: CA-PFIZER INC-2010056017

PATIENT
  Sex: Female

DRUGS (1)
  1. ZELDOX [Suspect]
     Dosage: UNK
     Dates: start: 20090801, end: 20100101

REACTIONS (1)
  - SLEEP DISORDER [None]
